FAERS Safety Report 11525446 (Version 4)
Quarter: 2015Q4

REPORT INFORMATION
  Report Type: Spontaneous
  Country: US (occurrence: US)
  Receive Date: 20150918
  Receipt Date: 20151002
  Transmission Date: 20160304
  Serious: Yes (Other)
  Sender: FDA-Public Use
  Company Number: US-TEVA-593313USA

PATIENT
  Age: 69 Year
  Sex: Female

DRUGS (12)
  1. TORASEMIDE [Suspect]
     Active Substance: TORSEMIDE
     Indication: OEDEMA
     Route: 048
  2. HYDROCHLOROTHIAZIDE. [Suspect]
     Active Substance: HYDROCHLOROTHIAZIDE
     Dosage: 12.5 MILLIGRAM DAILY;
     Dates: start: 20150827
  3. COUMADIN [Concomitant]
     Active Substance: WARFARIN SODIUM
     Indication: INTERNATIONAL NORMALISED RATIO
     Dosage: 2.5 TO 5MG BASED ON INR LEVEL
     Route: 048
     Dates: start: 201406
  4. TORASEMIDE [Suspect]
     Active Substance: TORSEMIDE
     Dosage: 100 MILLIGRAM DAILY;
     Route: 065
  5. DIGOXIN. [Concomitant]
     Active Substance: DIGOXIN
     Indication: ATRIAL FIBRILLATION
     Dosage: 1 EVERY OTHER DAY
     Route: 048
     Dates: start: 201406
  6. SILDENAFIL. [Suspect]
     Active Substance: SILDENAFIL
     Dosage: 120 MILLIGRAM DAILY;
     Route: 048
     Dates: start: 20150829
  7. BABY ASPIRIN [Concomitant]
     Active Substance: ASPIRIN
     Indication: HAEMORRHAGIC STROKE
     Dosage: 81 MILLIGRAM DAILY;
     Route: 048
     Dates: start: 1970
  8. TORASEMIDE [Suspect]
     Active Substance: TORSEMIDE
     Route: 048
  9. MULTIVITAMIN [Concomitant]
     Active Substance: VITAMINS
  10. SILDENAFIL. [Suspect]
     Active Substance: SILDENAFIL
     Indication: PULMONARY ARTERIAL PRESSURE
     Dosage: 60 MILLIGRAM DAILY;
     Route: 048
     Dates: start: 20150729
  11. TORASEMIDE [Suspect]
     Active Substance: TORSEMIDE
     Indication: OEDEMA
     Dosage: 20 MILLIGRAM DAILY; 20 MG IS TEVA^S
     Route: 048
  12. LEVOTHYROXINE. [Concomitant]
     Active Substance: LEVOTHYROXINE
     Indication: HYPOTHYROIDISM
     Route: 048

REACTIONS (12)
  - Oxygen saturation decreased [Not Recovered/Not Resolved]
  - Oedema [Not Recovered/Not Resolved]
  - Dyspnoea [Not Recovered/Not Resolved]
  - Flushing [Unknown]
  - Oedema peripheral [Unknown]
  - Drug ineffective [Unknown]
  - Catheterisation cardiac [Not Recovered/Not Resolved]
  - Pain in extremity [Unknown]
  - Dizziness [Not Recovered/Not Resolved]
  - Weight decreased [Not Recovered/Not Resolved]
  - Drug ineffective [Not Recovered/Not Resolved]
  - Pulse abnormal [Recovered/Resolved]

NARRATIVE: CASE EVENT DATE: 201507
